FAERS Safety Report 10377951 (Version 1)
Quarter: 2014Q3

REPORT INFORMATION
  Report Type: Spontaneous
  Country: US (occurrence: None)
  Receive Date: 20140807
  Receipt Date: 20140807
  Transmission Date: 20150326
  Serious: No
  Sender: FDA-Public Use
  Company Number: HA13-362-AE

PATIENT
  Age: 56 Year
  Sex: Female
  Weight: 127.01 kg

DRUGS (7)
  1. METFORMIN HCL [Suspect]
     Active Substance: METFORMIN HYDROCHLORIDE
     Indication: TYPE 2 DIABETES MELLITUS
     Dosage: 2DAY LATER - 3DAY AFTER
     Route: 048
  2. GLYBURIDE. [Concomitant]
     Active Substance: GLYBURIDE
  3. GABAPENTIN. [Concomitant]
     Active Substance: GABAPENTIN
  4. ENALAPRIL [Concomitant]
     Active Substance: ENALAPRIL
  5. ATENOLOL. [Concomitant]
     Active Substance: ATENOLOL
  6. OMEPRAZOLE. [Concomitant]
     Active Substance: OMEPRAZOLE
  7. ARMOUR THYROID [Concomitant]
     Active Substance: THYROID, PORCINE\THYROID, UNSPECIFIED

REACTIONS (9)
  - Pain in extremity [None]
  - Joint swelling [None]
  - Nervous system disorder [None]
  - Peripheral swelling [None]
  - Muscle spasms [None]
  - Myalgia [None]
  - Pain [None]
  - Gait disturbance [None]
  - Neuralgia [None]

NARRATIVE: CASE EVENT DATE: 201310
